FAERS Safety Report 23026588 (Version 3)
Quarter: 2023Q4

REPORT INFORMATION
  Report Type: Spontaneous
  Country: US (occurrence: None)
  Receive Date: 20231004
  Receipt Date: 20231018
  Transmission Date: 20240110
  Serious: Yes (Other)
  Sender: FDA-Public Use
  Company Number: US-ROCHE-3419026

PATIENT
  Age: 66 Year
  Sex: Female

DRUGS (8)
  1. XOLAIR [Suspect]
     Active Substance: OMALIZUMAB
     Indication: Idiopathic urticaria
     Route: 058
     Dates: start: 20230224
  2. XOLAIR [Suspect]
     Active Substance: OMALIZUMAB
  3. XOLAIR [Suspect]
     Active Substance: OMALIZUMAB
     Route: 058
     Dates: end: 202306
  4. XOLAIR [Suspect]
     Active Substance: OMALIZUMAB
  5. FAMOTIDINE [Concomitant]
     Active Substance: FAMOTIDINE
  6. CLARITIN [Concomitant]
     Active Substance: LORATADINE
  7. HYDROXYZINE [Concomitant]
     Active Substance: HYDROXYZINE HYDROCHLORIDE
  8. MONTELUKAST [Concomitant]
     Active Substance: MONTELUKAST SODIUM

REACTIONS (10)
  - Peripheral arterial occlusive disease [Unknown]
  - Iron deficiency anaemia [Recovered/Resolved]
  - Pruritus [Unknown]
  - Alopecia [Unknown]
  - Serum ferritin decreased [Unknown]
  - Hypotension [Unknown]
  - Off label use [Unknown]
  - Rhinorrhoea [Unknown]
  - COVID-19 [Unknown]
  - Arthropod bite [Unknown]

NARRATIVE: CASE EVENT DATE: 20230823
